FAERS Safety Report 21071337 (Version 3)
Quarter: 2023Q1

REPORT INFORMATION
  Report Type: Report from Study
  Country: US (occurrence: US)
  Receive Date: 20220712
  Receipt Date: 20230218
  Transmission Date: 20230417
  Serious: Yes (Hospitalization, Other)
  Sender: FDA-Public Use
  Company Number: US-NOVARTISPH-NVSC2022US156347

PATIENT
  Age: 85 Year
  Sex: Male

DRUGS (1)
  1. TABRECTA [Suspect]
     Active Substance: CAPMATINIB
     Indication: Glioblastoma multiforme
     Dosage: 200 MG, BID
     Route: 048
     Dates: start: 20220807, end: 20221017

REACTIONS (2)
  - Hallucination [Recovering/Resolving]
  - Deafness [Unknown]

NARRATIVE: CASE EVENT DATE: 20221214
